FAERS Safety Report 5326093-5 (Version None)
Quarter: 2007Q2

REPORT INFORMATION
  Report Type: 
  Country: None (occurrence: None)
  Receive Date: 20070220
  Receipt Date: 20061206
  Transmission Date: 20071010
  Serious: No
  Sender: FDA-Public Use
  Company Number: WAES 0612USA01064

PATIENT
  Age: 77 Year
  Sex: Female

DRUGS (7)
  1. JANUVIA [Suspect]
     Indication: DIABETES MELLITUS
     Dosage: PO
     Route: 048
     Dates: start: 20061101, end: 20061101
  2. AVAPRO [Concomitant]
  3. LEVEMIA [Concomitant]
  4. LEVOXYL [Concomitant]
  5. LIPITOR [Concomitant]
  6. SYMLIN [Concomitant]
  7. TOPROL-XL [Concomitant]

REACTIONS (1)
  - VISUAL ACUITY REDUCED [None]
